FAERS Safety Report 9095778 (Version 1)
Quarter: 2013Q1

REPORT INFORMATION
  Report Type: Spontaneous
  Country: US (occurrence: US)
  Receive Date: 20130219
  Receipt Date: 20130219
  Transmission Date: 20140127
  Serious: Yes (Other)
  Sender: FDA-Public Use
  Company Number: US-MEDICIS-2013P1002219

PATIENT
  Age: 63 Year
  Sex: Male
  Weight: 72.58 kg

DRUGS (3)
  1. ZYCLARA [Suspect]
     Route: 061
     Dates: start: 201210, end: 201211
  2. ZYCLARA [Suspect]
     Route: 061
     Dates: start: 201301
  3. DOXEPIN [Concomitant]

REACTIONS (9)
  - Cardiac flutter [Not Recovered/Not Resolved]
  - Heart valve incompetence [Not Recovered/Not Resolved]
  - Aspartate aminotransferase increased [Unknown]
  - Alanine aminotransferase increased [Unknown]
  - Sleep disorder [Recovered/Resolved]
  - Application site discolouration [Recovered/Resolved]
  - Application site erythema [Recovered/Resolved]
  - Palpitations [Not Recovered/Not Resolved]
  - Rash [Recovered/Resolved]
